FAERS Safety Report 6751275-5 (Version None)
Quarter: 2010Q2

REPORT INFORMATION
  Report Type: 
  Country: None (occurrence: None)
  Receive Date: 20100602
  Receipt Date: 20100519
  Transmission Date: 20101027
  Serious: Yes (Other)
  Sender: FDA-Public Use
  Company Number: US-SANOFI-AVENTIS-2010SA029096

PATIENT
  Age: 95 Year
  Sex: Male

DRUGS (3)
  1. MULTAQ [Suspect]
     Indication: ATRIAL FIBRILLATION
     Route: 065
  2. DIGOXIN [Concomitant]
  3. METOPROLOL TARTRATE [Concomitant]

REACTIONS (1)
  - HEPATIC ENZYME INCREASED [None]
